FAERS Safety Report 6105761-1 (Version None)
Quarter: 2009Q1

REPORT INFORMATION
  Report Type: 
  Country: None (occurrence: None)
  Receive Date: 20090304
  Receipt Date: 20090304
  Transmission Date: 20090719
  Serious: Yes (Hospitalization)
  Sender: FDA-Public Use
  Company Number: None

PATIENT
  Sex: Female
  Weight: 77 kg

DRUGS (13)
  1. TEMOZOLOMIDE [Suspect]
     Indication: GLIOBLASTOMA MULTIFORME
     Dosage: 200MG/M2 DAYS 1-5
     Dates: start: 20081201, end: 20081205
  2. IRINOTECAN HCL [Suspect]
     Indication: GLIOBLASTOMA MULTIFORME
     Dosage: 125MG/M2
     Dates: start: 20081201
  3. BEVACIZUMAB [Suspect]
     Indication: GLIOBLASTOMA MULTIFORME
     Dosage: 10MG/KG
     Dates: start: 20081201
  4. LISINOPRIL [Concomitant]
  5. AVANDAMET [Concomitant]
  6. REGLAN [Concomitant]
  7. SIMVASTATIN [Concomitant]
  8. MARINOL [Concomitant]
  9. LOMOTIL [Concomitant]
  10. ZOFRAN [Concomitant]
  11. TYLENOL ES [Concomitant]
  12. LORTAB [Concomitant]
  13. GARLIC [Concomitant]

REACTIONS (6)
  - BUNDLE BRANCH BLOCK RIGHT [None]
  - CONVULSION [None]
  - DEPRESSED LEVEL OF CONSCIOUSNESS [None]
  - DROOLING [None]
  - MENTAL STATUS CHANGES [None]
  - URINARY TRACT INFECTION [None]
